FAERS Safety Report 8175007-1 (Version None)
Quarter: 2012Q1

REPORT INFORMATION
  Report Type: 
  Country: None (occurrence: None)
  Receive Date: 20120229
  Receipt Date: 20101022
  Transmission Date: 20120608
  Serious: No
  Sender: FDA-Public Use
  Company Number: US-GLAXOSMITHKLINE-A0939127A

PATIENT
  Sex: Female

DRUGS (12)
  1. THALIDOMIDE [Suspect]
     Indication: MULTIPLE MYELOMA
     Dosage: 100MG TWICE PER DAY
     Dates: start: 20080301
  2. NEURONTIN [Concomitant]
     Dosage: 100MG THREE TIMES PER DAY
  3. LASIX [Concomitant]
  4. POTASSIUM CHLORIDE [Concomitant]
  5. DOXYCYCLINE [Concomitant]
     Dosage: 100MG TWICE PER DAY
  6. ASPIRIN [Concomitant]
  7. HYDRALAZINE HCL [Concomitant]
  8. OXYBUTYNIN [Concomitant]
     Dosage: 5MG AS REQUIRED
  9. MELPHALAN HYDROCHLORIDE [Suspect]
     Indication: MULTIPLE MYELOMA
     Route: 065
  10. ACYCLOVIR [Concomitant]
     Dosage: 800MG TWICE PER DAY
  11. PREDNISONE TAB [Concomitant]
  12. DEXAMETHASONE [Concomitant]

REACTIONS (2)
  - DISEASE PROGRESSION [None]
  - NO THERAPEUTIC RESPONSE [None]
